FAERS Safety Report 6166830-3 (Version None)
Quarter: 2009Q2

REPORT INFORMATION
  Report Type: 
  Country: None (occurrence: None)
  Receive Date: 20090423
  Receipt Date: 20090423
  Transmission Date: 20091009
  Serious: Yes (Life-Threatening)
  Sender: FDA-Public Use
  Company Number: None

PATIENT
  Age: 89 Year
  Sex: Male
  Weight: 59.4212 kg

DRUGS (1)
  1. CENTRUM SILVER MULTIVITAMIN TAB WYETH [Suspect]
     Indication: MEDICAL DIET
     Dosage: 1 DAILY
     Dates: start: 20090301, end: 20090422

REACTIONS (3)
  - CHOKING [None]
  - DYSPHAGIA [None]
  - PRODUCT QUALITY ISSUE [None]
